FAERS Safety Report 6605001-0 (Version None)
Quarter: 2010Q1

REPORT INFORMATION
  Report Type: 
  Country: None (occurrence: None)
  Receive Date: 20100218
  Receipt Date: 20100205
  Transmission Date: 20100710
  Serious: Yes (Death)
  Sender: FDA-Public Use
  Company Number: 2010BM000027

PATIENT
  Age: 12 Year
  Sex: Female
  Weight: 18 kg

DRUGS (2)
  1. NAGLAZYME [Suspect]
     Indication: MUCOPOLYSACCHARIDOSIS VI
     Dosage: 19 MG;QW;IVDRP ; 19 MG;QW;IVDRP
     Route: 041
     Dates: start: 20080806, end: 20090708
  2. NAGLAZYME [Suspect]
     Indication: MUCOPOLYSACCHARIDOSIS VI
     Dosage: 19 MG;QW;IVDRP ; 19 MG;QW;IVDRP
     Route: 041
     Dates: start: 20090902, end: 20090902

REACTIONS (2)
  - LUNG DISORDER [None]
  - PNEUMONIA [None]
